FAERS Safety Report 13660095 (Version 1)
Quarter: 2017Q2

REPORT INFORMATION
  Report Type: Spontaneous
  Country: US (occurrence: US)
  Receive Date: 20170616
  Receipt Date: 20170616
  Transmission Date: 20170830
  Serious: Yes (Other)
  Sender: FDA-Public Use
  Company Number: US-SA-2017SA105371

PATIENT
  Age: 9 Year
  Sex: Male

DRUGS (1)
  1. CEREZYME [Suspect]
     Active Substance: IMIGLUCERASE
     Indication: GAUCHER^S DISEASE TYPE III
     Dosage: DOSE:3200 UNIT(S)
     Route: 041

REACTIONS (2)
  - Off label use [Unknown]
  - Autism spectrum disorder [Not Recovered/Not Resolved]
